FAERS Safety Report 9408904 (Version 3)
Quarter: 2013Q3

REPORT INFORMATION
  Report Type: Report from Study
  Country: US (occurrence: US)
  Receive Date: 20130719
  Receipt Date: 20130822
  Transmission Date: 20140515
  Serious: Yes (Hospitalization)
  Sender: FDA-Public Use
  Company Number: US-ALEXION-A201301616

PATIENT
  Age: 24 Year
  Sex: Female

DRUGS (20)
  1. ECULIZUMAB [Suspect]
     Indication: HAEMOLYTIC URAEMIC SYNDROME
     Dosage: UNK
     Route: 042
  2. CELLCEPT [Concomitant]
     Indication: PRODUCT USED FOR UNKNOWN INDICATION
     Dosage: UNK
     Dates: end: 2009
  3. AMLODIPINE [Concomitant]
     Dosage: 5 MG, QD
     Route: 048
  4. IMURAN [Concomitant]
     Dosage: 25 MG, BID
     Route: 048
  5. COREG [Concomitant]
     Dosage: 25 MG, BID
     Route: 048
  6. CINACALCET [Concomitant]
     Dosage: 60 MG, QD
     Route: 048
  7. CLONIDINE [Concomitant]
     Dosage: 0.3 MG, TID
     Route: 048
  8. DILTIAZEM [Concomitant]
     Dosage: 360 MG, QD
     Route: 048
  9. BENADRYL [Concomitant]
     Dosage: 25 MG, SINGLE
     Route: 042
  10. BENADRYL [Concomitant]
     Dosage: 12.5 MG, Q4H PRN
     Route: 042
  11. DILAUDID [Concomitant]
     Dosage: 1 MG, SINGLE
     Route: 042
  12. DILAUDID [Concomitant]
     Dosage: 1 MG, Q4H PRN
     Route: 042
  13. ATIVAN [Concomitant]
     Dosage: 0.5 MG, Q8H PRN
     Route: 048
  14. MINOXIDIL [Concomitant]
     Dosage: 5 MG, BID
     Route: 048
  15. NORMAL SALINE [Concomitant]
     Dosage: 85 CC/HR
     Route: 042
  16. PROTONIX [Concomitant]
     Dosage: 40 MG, QD
     Route: 048
  17. PREDNISONE [Concomitant]
     Dosage: 10 MG, QD
     Route: 048
  18. PROGRAF [Concomitant]
     Dosage: 3 MG, BID
     Route: 048
  19. VALCYTE [Concomitant]
     Dosage: 450 MG, QD
     Route: 048
  20. AMBIEN [Concomitant]
     Dosage: 10 MG, QD
     Route: 048

REACTIONS (1)
  - Gastroenteritis [Recovered/Resolved]
